FAERS Safety Report 6447483-3 (Version None)
Quarter: 2009Q4

REPORT INFORMATION
  Report Type: 
  Country: None (occurrence: None)
  Receive Date: 20091119
  Receipt Date: 20090831
  Transmission Date: 20100525
  Serious: Yes (Hospitalization)
  Sender: FDA-Public Use
  Company Number: US-AMGEN-KDL301666

PATIENT
  Sex: Female
  Weight: 96.2 kg

DRUGS (3)
  1. ENBREL [Suspect]
     Indication: RHEUMATOID ARTHRITIS
     Route: 058
     Dates: start: 20080729
  2. PLAQUENIL [Concomitant]
     Dates: start: 20080725
  3. METHOTREXATE [Concomitant]
     Route: 048
     Dates: start: 20080710

REACTIONS (3)
  - HERPES SIMPLEX [None]
  - OPEN WOUND [None]
  - PNEUMONIA LEGIONELLA [None]
